FAERS Safety Report 8566905-5 (Version None)
Quarter: 2012Q3

REPORT INFORMATION
  Report Type: 
  Country: None (occurrence: None)
  Receive Date: 20120803
  Receipt Date: 20120725
  Transmission Date: 20120928
  Serious: Yes (Hospitalization)
  Sender: FDA-Public Use
  Company Number: US-UCBSA-060449

PATIENT
  Age: 24 Year
  Sex: Male
  Weight: 79.37 kg

DRUGS (14)
  1. PROBIOTICS [Concomitant]
     Indication: CROHN'S DISEASE
  2. CIMZIA [Suspect]
     Indication: CROHN'S DISEASE
     Route: 058
     Dates: start: 20110412
  3. AZATHIOPRINE [Concomitant]
     Indication: CROHN'S DISEASE
     Dates: start: 20111101
  4. VITAMIN D [Concomitant]
     Indication: CROHN'S DISEASE
     Dosage: 1000 UNIT, TAKE BY MOUTH DAILY
     Dates: start: 20110225
  5. PRILOSEC [Concomitant]
     Indication: CROHN'S DISEASE
     Dosage: TAKE 20 MG BY MOUTH DAILY
     Dates: start: 20110225
  6. FISH OIL [Concomitant]
     Indication: CROHN'S DISEASE
  7. ULTRAM [Concomitant]
     Indication: PAIN
     Dosage: 50 MG, 1 TABLET BY MOUTH EVERY 6 HOURS AS NEEDED FOR 20 DAYS
     Dates: start: 20111205
  8. CIMZIA [Suspect]
     Route: 058
     Dates: start: 20101214, end: 20110329
  9. FLAGYL [Concomitant]
     Dosage: 500-0.74MG/100 ML-%, INJECT 100 MLS INTO THE VEIN EVERY 8 HOURS
     Dates: start: 20120323
  10. IMURAN [Concomitant]
  11. CIPROFLOXACIN HCL [Concomitant]
     Indication: CROHN'S DISEASE
     Dosage: 500 MG, TAKE 1 TABLET BY MOUTH 2 TIMES DAILY FOR 11 DAYS
     Dates: start: 20111205
  12. FLAGYL [Concomitant]
     Indication: CROHN'S DISEASE
     Dosage: 500 MG, TAKE 1 TABLET BY MOUTH 3 TIMES DAILY FOR 11 DAYS
     Dates: start: 20111205
  13. DELTASONE [Concomitant]
     Indication: CROHN'S DISEASE
     Dosage: 10 MG TABLET
     Dates: start: 20111201
  14. CIMZIA [Suspect]
     Route: 058
     Dates: start: 20101019, end: 20101116

REACTIONS (2)
  - ABDOMINAL ABSCESS [None]
  - INTESTINAL STENOSIS [None]
